FAERS Safety Report 25051091 (Version 1)
Quarter: 2025Q1

REPORT INFORMATION
  Report Type: Spontaneous
  Country: US (occurrence: US)
  Receive Date: 20250307
  Receipt Date: 20250307
  Transmission Date: 20250409
  Serious: No
  Sender: BRISTOL-MYERS SQUIBB COMPANY
  Company Number: US-BRISTOL-MYERS SQUIBB COMPANY-2025-031690

PATIENT
  Sex: Male

DRUGS (2)
  1. COBENFY [Suspect]
     Active Substance: TROSPIUM CHLORIDE\XANOMELINE
     Indication: Product used for unknown indication
     Dosage: DOSE : 50 MG/20 MG;     FREQ : TWICE A DAY
     Route: 048
     Dates: start: 202502
  2. COBENFY [Suspect]
     Active Substance: TROSPIUM CHLORIDE\XANOMELINE
     Dosage: DOSE : 50 MG/20 MG;     FREQ : TWICE A DAY
     Route: 048
     Dates: start: 202502

REACTIONS (2)
  - Dyspepsia [Unknown]
  - Dry mouth [Unknown]

NARRATIVE: CASE EVENT DATE: 20250201
